FAERS Safety Report 24864416 (Version 2)
Quarter: 2025Q1

REPORT INFORMATION
  Report Type: Spontaneous
  Country: US (occurrence: US)
  Receive Date: 20250120
  Receipt Date: 20250121
  Transmission Date: 20250408
  Serious: No
  Sender: TRAVERE THERAPEUTICS
  Company Number: US-TRAVERE-2024TVT01363

PATIENT
  Age: 64 Year
  Sex: Female

DRUGS (2)
  1. FILSPARI [Suspect]
     Active Substance: SPARSENTAN
     Indication: IgA nephropathy
     Route: 048
     Dates: start: 202412
  2. FILSPARI [Suspect]
     Active Substance: SPARSENTAN
     Indication: Nephritic syndrome

REACTIONS (3)
  - Dizziness [Unknown]
  - Headache [Unknown]
  - Diplopia [Unknown]

NARRATIVE: CASE EVENT DATE: 20241201
